FAERS Safety Report 7915336-7 (Version None)
Quarter: 2011Q4

REPORT INFORMATION
  Report Type: 
  Country: None (occurrence: None)
  Receive Date: 20111115
  Receipt Date: 20111107
  Transmission Date: 20120403
  Serious: Yes (Hospitalization, Other)
  Sender: FDA-Public Use
  Company Number: PHHY2011VE099245

PATIENT
  Sex: Female

DRUGS (4)
  1. ANTIBIOTICS [Concomitant]
     Indication: INFECTION
     Dosage: ONE TABLET EVERY SIX HOURS
  2. ZOLEDRONOC ACID [Suspect]
     Dosage: 5 MG, YEARLY
     Route: 042
     Dates: start: 20101101
  3. CALCIBON D MAGNESIO [Concomitant]
  4. ZOLEDRONOC ACID [Suspect]
     Indication: OSTEOPOROSIS
     Dosage: 5 MG, YEARLY
     Route: 042
     Dates: start: 20091101

REACTIONS (3)
  - DYSPNOEA [None]
  - LUNG NEOPLASM [None]
  - CHEST PAIN [None]
